FAERS Safety Report 16113300 (Version 4)
Quarter: 2019Q2

REPORT INFORMATION
  Report Type: Report from Study
  Country: KR (occurrence: KR)
  Receive Date: 20190325
  Receipt Date: 20190424
  Transmission Date: 20190711
  Serious: Yes (Hospitalization)
  Sender: FDA-Public Use
  Company Number: KR-COLLEGIUM PHARMACEUTICAL, INC.-KR-2019COL000393

PATIENT
  Age: 65 Year
  Sex: Female

DRUGS (49)
  1. MAGMIL S [Concomitant]
     Dosage: UNK
     Dates: start: 20190226
  2. SULPRIDE [Concomitant]
     Active Substance: SULPIRIDE
     Indication: ABDOMINAL DISTENSION
     Dosage: UNK
     Dates: start: 20190129, end: 20190212
  3. HUMAN SERUM ALBUMIN [Concomitant]
     Active Substance: ALBUMIN HUMAN
     Dosage: UNK
     Dates: start: 20190226, end: 20190226
  4. MACPERAN [Concomitant]
     Active Substance: METOCLOPRAMIDE HYDROCHLORIDE
     Indication: ASCITES
     Dosage: UNK
     Dates: start: 20190207, end: 20190207
  5. ATIVAN [Concomitant]
     Active Substance: LORAZEPAM
     Indication: INSOMNIA
     Dosage: UNK
     Dates: start: 20190220, end: 20190220
  6. NUCYNTA ER [Suspect]
     Active Substance: TAPENTADOL HYDROCHLORIDE
     Indication: PAIN
     Dosage: 50 MG, BID
     Route: 048
     Dates: start: 20180918, end: 20190122
  7. STILNOX [Concomitant]
     Active Substance: ZOLPIDEM TARTRATE
     Indication: INSOMNIA
     Dosage: UNK
     Dates: start: 20180511, end: 20190218
  8. STILNOX [Concomitant]
     Active Substance: ZOLPIDEM TARTRATE
     Dosage: UNK
     Dates: start: 20190221
  9. EBASTEL [Concomitant]
     Active Substance: EBASTINE
     Indication: RASH
     Dosage: UNK
     Dates: start: 20190108, end: 20190214
  10. SANCUSO [Concomitant]
     Active Substance: GRANISETRON
     Dosage: UNK
     Dates: start: 20190221
  11. DUPHALAC EASY [Concomitant]
     Indication: CONSTIPATION
     Dosage: 15 ML, TID
     Dates: start: 20190122, end: 20190206
  12. SMOFLIPID [Concomitant]
     Active Substance: FISH OIL\MEDIUM-CHAIN TRIGLYCERIDES\OLIVE OIL\SOYBEAN OIL
     Indication: MALNUTRITION
     Dosage: UNK
     Dates: start: 20190206, end: 20190206
  13. MACPERAN [Concomitant]
     Active Substance: METOCLOPRAMIDE HYDROCHLORIDE
     Dosage: UNK
     Dates: start: 20190208, end: 20190208
  14. MORPHINE SULPHATE [Concomitant]
     Active Substance: MORPHINE SULFATE
     Dosage: UNK
     Dates: start: 20190222, end: 20190222
  15. PHOSTEN [Concomitant]
     Indication: PROPHYLAXIS
     Dosage: UNK
     Dates: start: 20190212, end: 20190212
  16. KEYTRUDA [Concomitant]
     Active Substance: PEMBROLIZUMAB
     Indication: GASTRIC CANCER
     Dosage: UNK
     Dates: start: 20190215, end: 20190215
  17. PETHIDINE HCL [Concomitant]
     Indication: ABDOMINAL PAIN
     Dosage: UNK
     Dates: start: 20190218, end: 20190218
  18. CEFOTAXIME [Concomitant]
     Active Substance: CEFOTAXIME SODIUM
     Indication: INFECTION PROPHYLAXIS
     Dosage: UNK
     Dates: start: 20190218, end: 20190218
  19. TARGIN [Concomitant]
     Active Substance: NALOXONE HYDROCHLORIDE\OXYCODONE HYDROCHLORIDE
     Indication: ABDOMINAL PAIN
     Dosage: UNK
     Dates: start: 20190101, end: 20190213
  20. RESOLOR [Concomitant]
     Active Substance: PRUCALOPRIDE SUCCINATE
     Indication: CONSTIPATION
     Dosage: 2 MG, QD
     Dates: start: 20190122
  21. DUPHALAC EASY [Concomitant]
     Dosage: UNK
     Dates: start: 20190226
  22. ZANAPAM [Concomitant]
     Indication: INSOMNIA
     Dosage: UNK
     Dates: start: 20190208, end: 20190218
  23. CEFOTAXIME [Concomitant]
     Active Substance: CEFOTAXIME SODIUM
     Dosage: UNK
     Dates: start: 20190219, end: 20190221
  24. SOXINASE [Concomitant]
     Indication: DYSPEPSIA
     Dosage: UNK
     Dates: start: 20190215
  25. EMEND [Concomitant]
     Active Substance: APREPITANT
     Indication: ASCITES
     Dosage: UNK
     Dates: start: 20190131, end: 20190201
  26. MACPERAN [Concomitant]
     Active Substance: METOCLOPRAMIDE HYDROCHLORIDE
     Indication: PROPHYLAXIS OF NAUSEA AND VOMITING
     Dosage: UNK
     Dates: start: 20190208, end: 20190212
  27. ZANAPAM [Concomitant]
     Dosage: UNK
     Dates: start: 20190220
  28. MORPHINE SULPHATE [Concomitant]
     Active Substance: MORPHINE SULFATE
     Indication: ABDOMINAL PAIN
     Dosage: UNK
     Dates: start: 20190212, end: 20190212
  29. MORPHINE SULPHATE [Concomitant]
     Active Substance: MORPHINE SULFATE
     Dosage: UNK
     Dates: start: 20190215, end: 20190215
  30. MORPHINE SULPHATE [Concomitant]
     Active Substance: MORPHINE SULFATE
     Dosage: UNK
     Dates: start: 20190218, end: 20190219
  31. MORPHINE SULPHATE [Concomitant]
     Active Substance: MORPHINE SULFATE
     Dosage: UNK
     Dates: start: 20190221, end: 20190221
  32. TARGIN [Concomitant]
     Active Substance: NALOXONE HYDROCHLORIDE\OXYCODONE HYDROCHLORIDE
     Dosage: UNK
     Dates: start: 20190123
  33. HUMAN SERUM ALBUMIN [Concomitant]
     Active Substance: ALBUMIN HUMAN
     Dosage: UNK
     Dates: start: 20190218, end: 20190218
  34. ABSTRAL [Concomitant]
     Active Substance: FENTANYL CITRATE
     Indication: ABDOMINAL PAIN
     Dosage: UNK
     Dates: start: 20190216
  35. WINUF [Concomitant]
     Indication: MALNUTRITION
     Dosage: UNK
     Dates: start: 20190218, end: 20190221
  36. HUMAN SERUM ALBUMIN [Concomitant]
     Active Substance: ALBUMIN HUMAN
     Indication: ASCITES
     Dosage: UNK
     Dates: start: 20190206, end: 20190207
  37. HUMAN SERUM ALBUMIN [Concomitant]
     Active Substance: ALBUMIN HUMAN
     Dosage: UNK
     Dates: start: 20190215, end: 20190215
  38. ZANAPAM [Concomitant]
     Dosage: UNK
     Dates: start: 20190220, end: 20190220
  39. SANCUSO [Concomitant]
     Active Substance: GRANISETRON
     Indication: ASCITES
     Dosage: UNK
     Dates: start: 20190129, end: 20190204
  40. ZOFRAN [Concomitant]
     Active Substance: ONDANSETRON HYDROCHLORIDE
     Indication: ASCITES
     Dosage: UNK
     Dates: start: 20190130, end: 20190201
  41. HUMAN SERUM ALBUMIN [Concomitant]
     Active Substance: ALBUMIN HUMAN
     Dosage: UNK
     Dates: start: 20190212, end: 20190212
  42. ZANAPAM [Concomitant]
     Dosage: UNK
     Dates: start: 20190208, end: 20190218
  43. MORPHINE SULPHATE [Concomitant]
     Active Substance: MORPHINE SULFATE
     Dosage: UNK
     Dates: start: 20190220, end: 20190220
  44. MEIACT [Concomitant]
     Active Substance: CEFDITOREN PIVOXIL
     Indication: INFECTION PROPHYLAXIS
     Dosage: UNK
     Dates: start: 20190222, end: 20190226
  45. NUCYNTA ER [Suspect]
     Active Substance: TAPENTADOL HYDROCHLORIDE
     Dosage: 100 MG, BID
     Route: 048
     Dates: start: 20190122
  46. MAGMIL S [Concomitant]
     Indication: CONSTIPATION
     Dosage: UNK
     Dates: start: 20180720, end: 20190219
  47. DUPHALAC EASY [Concomitant]
     Dosage: UNK
     Dates: start: 20190215, end: 20190215
  48. MACPERAN [Concomitant]
     Active Substance: METOCLOPRAMIDE HYDROCHLORIDE
     Dosage: UNK
     Dates: start: 20190219, end: 20190220
  49. CEFOTAXIME [Concomitant]
     Active Substance: CEFOTAXIME SODIUM
     Dosage: UNK
     Dates: start: 20190222, end: 20190222

REACTIONS (4)
  - Constipation [Recovered/Resolved]
  - Ascites [Recovered/Resolved]
  - Catheter site infection [Recovered/Resolved]
  - Oedema peripheral [Recovered/Resolved]

NARRATIVE: CASE EVENT DATE: 20190218
